FAERS Safety Report 6201449-7 (Version None)
Quarter: 2009Q2

REPORT INFORMATION
  Report Type: 
  Country: None (occurrence: None)
  Receive Date: 20090526
  Receipt Date: 20090513
  Transmission Date: 20091009
  Serious: Yes (Death)
  Sender: FDA-Public Use
  Company Number: JP-ROCHE-625495

PATIENT
  Sex: Male
  Weight: 62 kg

DRUGS (11)
  1. MYCOPHENOLATE MOFETIL [Suspect]
     Indication: GRAFT VERSUS HOST DISEASE
     Route: 048
     Dates: start: 20060518, end: 20060606
  2. PREDONINE [Concomitant]
     Dosage: NOTE: 30- 120 MG
     Route: 041
     Dates: start: 20060420, end: 20060518
  3. PROGRAF [Concomitant]
     Dosage: NOTE: 2-8 MG
     Route: 048
     Dates: start: 20060518, end: 20060706
  4. SOL-MELCORT [Concomitant]
     Dosage: NOTE: 250-750 MG
     Route: 041
     Dates: start: 20060518, end: 20060721
  5. URSO 250 [Concomitant]
     Dosage: FORM: ORAL FORMULATION (NOT OTHERWISE SPECIFIED)
     Route: 048
     Dates: start: 20060405, end: 20060706
  6. ZOVIRAX [Concomitant]
     Dosage: FORM: ORAL FORMULATION (NOT OTHERWISE SPECIFIED)
     Route: 048
     Dates: start: 20060405, end: 20060706
  7. FUNGUARD [Concomitant]
     Route: 041
     Dates: start: 20060425, end: 20060714
  8. NEO-MINOPHAGEN C [Concomitant]
     Route: 041
     Dates: start: 20060512, end: 20060629
  9. ISCOTIN [Concomitant]
     Dosage: FORM: ORAL FORMULATION (NOT OTHERWISE SPECIFIED)
     Route: 048
     Dates: start: 20060519, end: 20060525
  10. DENOSINE [Concomitant]
     Route: 041
     Dates: start: 20060523, end: 20060607
  11. GASTER D [Concomitant]
     Route: 048
     Dates: end: 20060706

REACTIONS (3)
  - BLOOD BILIRUBIN INCREASED [None]
  - BLOOD UREA INCREASED [None]
  - GRAFT VERSUS HOST DISEASE [None]
